FAERS Safety Report 7212248-1 (Version None)
Quarter: 2010Q4

REPORT INFORMATION
  Report Type: 
  Country: None (occurrence: None)
  Receive Date: 20101229
  Receipt Date: 20101213
  Transmission Date: 20110411
  Serious: Yes (Death, Hospitalization)
  Sender: FDA-Public Use
  Company Number: OU-10-042

PATIENT
  Age: 12 Year
  Sex: Male

DRUGS (5)
  1. CEFEPIME FOR INJECTION USP (NO PREF. NAME) [Suspect]
     Indication: FEBRILE NEUTROPENIA
     Dosage: IV
     Route: 042
  2. AMIKACIN [Suspect]
     Indication: FEBRILE NEUTROPENIA
     Dosage: IV
     Route: 042
  3. AMLODIPINE [Concomitant]
  4. CAPTOPRIL [Concomitant]
  5. ALLOPURINOL [Concomitant]

REACTIONS (5)
  - GRAND MAL CONVULSION [None]
  - PULMONARY HAEMORRHAGE [None]
  - RENAL FAILURE [None]
  - REVERSIBLE POSTERIOR LEUKOENCEPHALOPATHY SYNDROME [None]
  - SEPSIS [None]
